FAERS Safety Report 4283384-7 (Version None)
Quarter: 2004Q1

REPORT INFORMATION
  Report Type: 
  Country: None (occurrence: None)
  Receive Date: 20040130
  Receipt Date: 20040130
  Transmission Date: 20041129
  Serious: No
  Sender: FDA-Public Use
  Company Number: None

PATIENT
  Age: 68 Year
  Sex: Male

DRUGS (2)
  1. BIPERIDEN HYDROCHLORIDE TAB [Suspect]
     Dosage: TABLET
  2. RESPERIDONE [Suspect]
     Dosage: TABLET

REACTIONS (3)
  - FATIGUE [None]
  - MEDICATION ERROR [None]
  - SOMNOLENCE [None]
